FAERS Safety Report 14848955 (Version 1)
Quarter: 2018Q2

REPORT INFORMATION
  Report Type: Spontaneous
  Country: US (occurrence: US)
  Receive Date: 20180504
  Receipt Date: 20180504
  Transmission Date: 20180711
  Serious: No
  Sender: FDA-Public Use
  Company Number: US-TEVA-2018-US-888176

PATIENT
  Sex: Female

DRUGS (1)
  1. FENTORA [Suspect]
     Active Substance: FENTANYL CITRATE
     Indication: MIGRAINE
     Dosage: 2 TABLETS EVERY 6 HOURS
     Route: 065
     Dates: start: 2014

REACTIONS (1)
  - Drug ineffective for unapproved indication [Unknown]
